FAERS Safety Report 24697337 (Version 1)
Quarter: 2024Q4

REPORT INFORMATION
  Report Type: Spontaneous
  Country: US (occurrence: US)
  Receive Date: 20241204
  Receipt Date: 20241204
  Transmission Date: 20250114
  Serious: Yes (Other)
  Sender: AMGEN
  Company Number: US-AMGEN-USASP2024235631

PATIENT
  Age: 55 Year
  Sex: Female

DRUGS (29)
  1. TEPEZZA [Suspect]
     Active Substance: TEPROTUMUMAB-TRBW
     Indication: Toxic goitre
     Dosage: 660 MILLIGRAM, Q3WK
     Route: 040
     Dates: start: 20221106
  2. TEPEZZA [Suspect]
     Active Substance: TEPROTUMUMAB-TRBW
     Dosage: 1320 MILLIGRAM, Q3WK
     Route: 040
     Dates: start: 20221204
  3. TEPEZZA [Suspect]
     Active Substance: TEPROTUMUMAB-TRBW
     Dosage: UNK, Q3WK
     Route: 040
  4. TEPEZZA [Suspect]
     Active Substance: TEPROTUMUMAB-TRBW
     Dosage: UNK, Q3WK
     Route: 040
  5. TEPEZZA [Suspect]
     Active Substance: TEPROTUMUMAB-TRBW
     Dosage: UNK, Q3WK
     Route: 040
  6. TEPEZZA [Suspect]
     Active Substance: TEPROTUMUMAB-TRBW
     Dosage: UNK, Q3WK (SIXTH INFUSION)
     Route: 040
  7. TEPEZZA [Suspect]
     Active Substance: TEPROTUMUMAB-TRBW
     Dosage: 1320 MILLIGRAM, Q3WK
     Route: 040
     Dates: end: 20231102
  8. OZEMPIC [Concomitant]
     Active Substance: SEMAGLUTIDE
     Dosage: 1 MILLIGRAM, QWK
     Route: 058
  9. SODIUM CHLORIDE [Concomitant]
     Active Substance: SODIUM CHLORIDE
     Dosage: 10 MILLILITER, TID
     Route: 040
     Dates: start: 20221106
  10. SODIUM CHLORIDE [Concomitant]
     Active Substance: SODIUM CHLORIDE
     Dosage: 10 MILLILITER
     Route: 040
  11. SODIUM CHLORIDE [Concomitant]
     Active Substance: SODIUM CHLORIDE
     Dosage: 10 MILLILITER
     Route: 040
  12. SODIUM CHLORIDE [Concomitant]
     Active Substance: SODIUM CHLORIDE
     Dosage: 10 MILLILITER (SASH)
     Route: 040
     Dates: start: 20221204
  13. SODIUM CHLORIDE [Concomitant]
     Active Substance: SODIUM CHLORIDE
     Dosage: UNK
     Route: 040
  14. SODIUM CHLORIDE [Concomitant]
     Active Substance: SODIUM CHLORIDE
     Dosage: 10 MILLILITER, TID
     Route: 040
     Dates: end: 20231102
  15. EPINEPHRINE [Concomitant]
     Active Substance: EPINEPHRINE
     Dosage: 1 MILLIGRAM PER MILLILITRE
     Route: 030
     Dates: start: 20221106, end: 20231102
  16. XIGDUO XR [Concomitant]
     Active Substance: DAPAGLIFLOZIN PROPANEDIOL\METFORMIN HYDROCHLORIDE
     Dosage: UNK, QD  (TWO TABLETS) (5MG- 1000 MG)
     Route: 065
  17. ROSUVASTATIN [Concomitant]
     Active Substance: ROSUVASTATIN
     Dosage: 5 MILLIGRAM, QWK (SATURDAY/ WEEKEND ONLY)
     Route: 048
  18. TAPAZOLE [Concomitant]
     Active Substance: METHIMAZOLE
     Dosage: 10 MILLIGRAM, BID
     Route: 065
  19. LISINOPRIL [Concomitant]
     Active Substance: LISINOPRIL
     Dosage: 2.5 MILLIGRAM, QD
     Route: 048
  20. WATER FOR INJECTION [Concomitant]
     Active Substance: WATER
     Dosage: UNK
     Route: 065
  21. EPINEPHRINE [Concomitant]
     Active Substance: EPINEPHRINE
     Dosage: UNK
     Route: 065
     Dates: start: 20221025, end: 20230122
  22. EPINEPHRINE [Concomitant]
     Active Substance: EPINEPHRINE
     Indication: Hypersensitivity
     Dosage: 0.1 MILLIGRAM
     Route: 065
     Dates: start: 20221025
  23. EPINEPHRINE [Concomitant]
     Active Substance: EPINEPHRINE
     Dosage: 1 MILLIGRAM PER MILLILITRE
     Route: 058
     Dates: start: 20221204
  24. EPINEPHRINE [Concomitant]
     Active Substance: EPINEPHRINE
     Dosage: 0.1 MILLIGRAM
     Route: 065
     Dates: end: 20230122
  25. DIPHENHYDRAMINE HYDROCHLORIDE [Concomitant]
     Active Substance: DIPHENHYDRAMINE HYDROCHLORIDE
     Dosage: 50 MILLIGRAM
     Route: 065
     Dates: start: 20221025, end: 20230122
  26. METHIMAZOLE [Concomitant]
     Active Substance: METHIMAZOLE
     Dosage: 10 MILLIGRAM, QD (MONDAYTO FRIDAY) (TWO TABLETS)
     Route: 048
     Dates: start: 20220209
  27. XULTOPHY 100/3.6 [Concomitant]
     Active Substance: INSULIN DEGLUDEC\LIRAGLUTIDE
     Dosage: UNK
     Route: 065
  28. INSULIN NOS [Concomitant]
     Active Substance: INSULIN NOS
     Dosage: UNK
     Route: 065
  29. Artificial tears [Concomitant]
     Dosage: UNK
     Route: 065

REACTIONS (23)
  - Deafness [Unknown]
  - Type 2 diabetes mellitus [Unknown]
  - Alopecia [Recovering/Resolving]
  - Palpitations [Unknown]
  - Tremor [Recovered/Resolved]
  - Blood pressure increased [Unknown]
  - Blood thyroid stimulating hormone decreased [Unknown]
  - Thyroxine free increased [Unknown]
  - Tri-iodothyronine free increased [Unknown]
  - Blood sodium increased [Unknown]
  - Myalgia [Unknown]
  - Fatigue [Unknown]
  - Nausea [Unknown]
  - Constipation [Unknown]
  - Pain [Unknown]
  - Ear discomfort [Unknown]
  - Excessive cerumen production [Unknown]
  - Contusion [Not Recovered/Not Resolved]
  - Muscle spasms [Unknown]
  - Blood glucose increased [Unknown]
  - Hypoacusis [Unknown]
  - Lacrimation increased [Unknown]
  - Taste disorder [Unknown]

NARRATIVE: CASE EVENT DATE: 20220101
